FAERS Safety Report 9083154 (Version 1)
Quarter: 2013Q1

REPORT INFORMATION
  Report Type: Report from Study
  Country: US (occurrence: US)
  Receive Date: 20130130
  Receipt Date: 20130130
  Transmission Date: 20140127
  Serious: No
  Sender: FDA-Public Use
  Company Number: US-ABBOTT-12P-163-0966190-00

PATIENT
  Sex: Female

DRUGS (1)
  1. HUMIRA 40 MG/0.8 ML PEN [Suspect]
     Indication: PSORIATIC ARTHROPATHY
     Dates: start: 20120516, end: 20120717

REACTIONS (6)
  - Drug ineffective [Unknown]
  - Neuropathy peripheral [Unknown]
  - Burning sensation [Unknown]
  - Burning sensation [Unknown]
  - Psoriasis [Unknown]
  - Arthritis [Not Recovered/Not Resolved]
